FAERS Safety Report 18820866 (Version 1)
Quarter: 2021Q1

REPORT INFORMATION
  Report Type: Spontaneous
  Country: US (occurrence: US)
  Receive Date: 20210202
  Receipt Date: 20210202
  Transmission Date: 20210419
  Serious: Yes (Other)
  Sender: FDA-Public Use
  Company Number: US-GLAXOSMITHKLINE-US2021018334

PATIENT
  Age: 77 Year
  Sex: Female

DRUGS (1)
  1. DYAZIDE [Suspect]
     Active Substance: HYDROCHLOROTHIAZIDE\TRIAMTERENE
     Indication: BLOOD PRESSURE MEASUREMENT
     Dosage: UNK (25 MG/37.5 MG)
     Route: 048
     Dates: start: 1978

REACTIONS (4)
  - Blood potassium decreased [Unknown]
  - Pneumonia [Unknown]
  - Atrial fibrillation [Unknown]
  - Fluid retention [Unknown]

NARRATIVE: CASE EVENT DATE: 20201225
